FAERS Safety Report 9097324 (Version 2)
Quarter: 2013Q1

REPORT INFORMATION
  Report Type: Spontaneous
  Country: FR (occurrence: FR)
  Receive Date: 20130212
  Receipt Date: 20130315
  Transmission Date: 20140127
  Serious: Yes (Other)
  Sender: FDA-Public Use
  Company Number: FR-TEVA-385435ISR

PATIENT
  Sex: Male

DRUGS (4)
  1. ZOLPIDEM [Suspect]
     Dosage: ONE INTAKE
     Route: 048
     Dates: start: 201301, end: 201301
  2. ACEBUTOLOL 200 MG [Concomitant]
     Indication: CORONARY ARTERY DISEASE
     Dosage: 1 DOSAGE FORMS DAILY;
     Route: 048
  3. TAHOR 40 MG [Concomitant]
     Dosage: 1 DOSAGE FORMS DAILY;
     Route: 048
  4. ASPEGIC 100 MG [Concomitant]
     Dosage: 1 DOSAGE FORMS DAILY;
     Route: 048

REACTIONS (5)
  - Diplopia [Recovered/Resolved]
  - Amnesia [Recovered/Resolved]
  - Gait disturbance [Recovered/Resolved]
  - Road traffic accident [Recovered/Resolved]
  - Medication error [Recovered/Resolved]
